FAERS Safety Report 12265155 (Version 1)
Quarter: 2016Q2

REPORT INFORMATION
  Report Type: Spontaneous
  Country: GB (occurrence: GB)
  Receive Date: 20160413
  Receipt Date: 20160413
  Transmission Date: 20160815
  Serious: Yes (Disabling)
  Sender: FDA-Public Use
  Company Number: GB-COL_22529_2016

PATIENT
  Age: 78 Year
  Sex: Male
  Weight: 88.9 kg

DRUGS (3)
  1. INDAPAMIDE. [Concomitant]
     Active Substance: INDAPAMIDE
     Indication: HYPERTENSION
     Dosage: NI/NI/
     Route: 048
  2. COLGATE DURAPHAT [Suspect]
     Active Substance: SODIUM FLUORIDE
     Indication: DENTAL DISORDER PROPHYLAXIS
     Dosage: NI/NI/
     Route: 004
     Dates: start: 20160223, end: 20160304
  3. IRBESARTAN. [Concomitant]
     Active Substance: IRBESARTAN
     Indication: HYPERTENSION
     Dosage: NI/NI/
     Route: 048

REACTIONS (2)
  - Foreign body sensation in eyes [Recovering/Resolving]
  - Muscle fatigue [Recovering/Resolving]
